FAERS Safety Report 8211061-6 (Version None)
Quarter: 2012Q1

REPORT INFORMATION
  Report Type: 
  Country: None (occurrence: None)
  Receive Date: 20120315
  Receipt Date: 20120305
  Transmission Date: 20120608
  Serious: Yes (Hospitalization)
  Sender: FDA-Public Use
  Company Number: US-SANOFI-AVENTIS-2012SA011645

PATIENT
  Age: 67 Year
  Sex: Male
  Weight: 83.91 kg

DRUGS (4)
  1. SOLOSTAR [Suspect]
  2. LANTUS [Suspect]
     Dosage: 12 UNITS  8 UNITS AT 8AM AND 12 PM
     Route: 058
     Dates: start: 20020101
  3. SOLOSTAR [Suspect]
  4. LANTUS [Suspect]
     Dosage: 12 UNITS  8 UNITS AT 8AM AND 12 PM
     Route: 058
     Dates: start: 20020101

REACTIONS (1)
  - PANCREATITIS [None]
